FAERS Safety Report 5014811-5 (Version None)
Quarter: 2006Q2

REPORT INFORMATION
  Report Type: 
  Country: None (occurrence: None)
  Receive Date: 20060414
  Receipt Date: 20051226
  Transmission Date: 20061013
  Serious: No
  Sender: FDA-Public Use
  Company Number: 2005SP004522

PATIENT
  Age: 35 Year
  Sex: Male

DRUGS (2)
  1. LUNESTA [Suspect]
     Dosage: HS;ORAL
     Route: 048
     Dates: start: 20050101
  2. CARBAMAZEPINE [Concomitant]

REACTIONS (4)
  - DISINHIBITION [None]
  - FATIGUE [None]
  - HALLUCINATION, AUDITORY [None]
  - HALLUCINATION, VISUAL [None]
